FAERS Safety Report 18726902 (Version 1)
Quarter: 2021Q1

REPORT INFORMATION
  Report Type: Spontaneous
  Country: US (occurrence: US)
  Receive Date: 20210112
  Receipt Date: 20210112
  Transmission Date: 20210419
  Serious: Yes (Life-Threatening, Hospitalization, Other)
  Sender: FDA-Public Use
  Company Number: US-LUPIN PHARMACEUTICALS INC.-2020-11659

PATIENT
  Age: 53 Year
  Sex: Male

DRUGS (10)
  1. INSULIN [Suspect]
     Active Substance: INSULIN NOS
     Dosage: UNK (1000 IU/HR)
     Route: 065
  2. FAT EMULSION NOS [Suspect]
     Active Substance: EGG PHOSPHOLIPIDS\SAFFLOWER OIL\SOYBEAN OIL
     Indication: DISTRIBUTIVE SHOCK
     Dosage: UNK
     Route: 065
  3. INSULIN [Suspect]
     Active Substance: INSULIN NOS
     Indication: DISTRIBUTIVE SHOCK
     Dosage: UNK (UP TO 10 IU PER KG PER HOUR)
     Route: 065
  4. CALCIUM ACETATE. [Suspect]
     Active Substance: CALCIUM ACETATE
     Dosage: UNK (CALCIUM CHLORIDE INFUSION)
     Route: 065
  5. DOPAMINE [Suspect]
     Active Substance: DOPAMINE HYDROCHLORIDE
     Indication: DISTRIBUTIVE SHOCK
     Dosage: UNK
     Route: 065
  6. ASPIRIN [ACETYLSALICYLIC ACID] [Suspect]
     Active Substance: ASPIRIN
     Indication: PRODUCT USED FOR UNKNOWN INDICATION
     Dosage: 30 DOSAGE FORM (30 PILLS OF ASPIRIN (APPROXIMATELY 2500 MG))
     Route: 048
  7. CALCIUM ACETATE. [Suspect]
     Active Substance: CALCIUM ACETATE
     Indication: DISTRIBUTIVE SHOCK
     Dosage: UNK
     Route: 065
  8. NOREPINEPHRINE. [Suspect]
     Active Substance: NOREPINEPHRINE
     Indication: DISTRIBUTIVE SHOCK
     Dosage: UNK
     Route: 065
  9. VALPROATE [Suspect]
     Active Substance: VALPROIC ACID
     Indication: PRODUCT USED FOR UNKNOWN INDICATION
     Dosage: 05 DOSAGE FORM (5 PILLS)
     Route: 048
  10. AMLODIPINE [Suspect]
     Active Substance: AMLODIPINE BESYLATE
     Indication: PRODUCT USED FOR UNKNOWN INDICATION
     Dosage: 75 MILLIGRAM (15 PILLS)
     Route: 048

REACTIONS (9)
  - Hypoxia [Recovered/Resolved]
  - Toxicity to various agents [Recovered/Resolved]
  - Hypotension [Recovered/Resolved]
  - Acute kidney injury [Recovered/Resolved]
  - Pulmonary oedema [Recovered/Resolved]
  - Acidosis [Recovered/Resolved]
  - Drug ineffective [Unknown]
  - Overdose [Unknown]
  - Oliguria [Recovered/Resolved]
